FAERS Safety Report 9778776 (Version 2)
Quarter: 2014Q1

REPORT INFORMATION
  Report Type: Report from Study
  Country: PR (occurrence: PR)
  Receive Date: 20131223
  Receipt Date: 20140118
  Transmission Date: 20141002
  Serious: Yes (Death)
  Sender: FDA-Public Use
  Company Number: PR-ABBVIE-13P-131-1181254-00

PATIENT
  Sex: Male
  Weight: 51.76 kg

DRUGS (12)
  1. HUMIRA [Suspect]
     Indication: COLITIS ULCERATIVE
     Route: 058
     Dates: start: 20130925, end: 20131204
  2. ASACOL [Concomitant]
     Indication: COLITIS ULCERATIVE
  3. IMURAN [Concomitant]
     Indication: COLITIS ULCERATIVE
  4. PREDNISONE [Concomitant]
     Indication: COLITIS ULCERATIVE
  5. COUMADIN [Concomitant]
     Indication: PRODUCT USED FOR UNKNOWN INDICATION
  6. LIPITOR [Concomitant]
     Indication: BLOOD CHOLESTEROL INCREASED
  7. FOLIC ACID [Concomitant]
     Indication: PRODUCT USED FOR UNKNOWN INDICATION
  8. METOPROLOL [Concomitant]
     Indication: HYPERTENSION
  9. MULTIVITAMIN [Concomitant]
     Indication: PRODUCT USED FOR UNKNOWN INDICATION
  10. ASPIRIN [Concomitant]
     Indication: HYPERTENSION
  11. LASIX [Concomitant]
     Indication: PRODUCT USED FOR UNKNOWN INDICATION
  12. ALDACTONE [Concomitant]
     Indication: PRODUCT USED FOR UNKNOWN INDICATION

REACTIONS (3)
  - Cardio-respiratory arrest [Fatal]
  - Decreased appetite [Not Recovered/Not Resolved]
  - Weight decreased [Not Recovered/Not Resolved]
